FAERS Safety Report 15671657 (Version 1)
Quarter: 2018Q4

REPORT INFORMATION
  Report Type: Spontaneous
  Country: GB (occurrence: FR)
  Receive Date: 20181129
  Receipt Date: 20181129
  Transmission Date: 20190205
  Serious: Yes (Other)
  Sender: FDA-Public Use
  Company Number: FR-FRESENIUS KABI-FK201811947

PATIENT
  Age: 69 Year
  Sex: Female
  Weight: 53.2 kg

DRUGS (1)
  1. IRINOTECAN 20 MG/ML CONCENTRATE FOR SOLUTION FOR INFUSION [Suspect]
     Active Substance: IRINOTECAN
     Indication: PANCREATIC CARCINOMA
     Route: 041
     Dates: start: 20181106, end: 20181106

REACTIONS (5)
  - Respiratory distress [Recovered/Resolved]
  - Hypersensitivity [Recovered/Resolved]
  - Myalgia [Recovered/Resolved with Sequelae]
  - Myoclonus [Unknown]
  - Laryngospasm [Recovered/Resolved]

NARRATIVE: CASE EVENT DATE: 20181106
